FAERS Safety Report 4931217-5 (Version None)
Quarter: 2006Q1

REPORT INFORMATION
  Report Type: 
  Country: None (occurrence: None)
  Receive Date: 20060302
  Receipt Date: 20051213
  Transmission Date: 20060701
  Serious: Yes (Death, Life-Threatening)
  Sender: FDA-Public Use
  Company Number: US-MERCK-0512USA02215

PATIENT
  Age: 50 Year
  Sex: Male

DRUGS (3)
  1. VIOXX [Suspect]
     Indication: ARTHRITIS
     Route: 048
  2. THEOPHYLLINE [Concomitant]
     Route: 065
  3. ALBUTEROL [Concomitant]
     Route: 065

REACTIONS (2)
  - DEATH [None]
  - TREATMENT NONCOMPLIANCE [None]
